FAERS Safety Report 9581516 (Version 1)
Quarter: 2013Q4

REPORT INFORMATION
  Report Type: Spontaneous
  Country: IT (occurrence: IT)
  Receive Date: 20131002
  Receipt Date: 20131002
  Transmission Date: 20140711
  Serious: Yes (Hospitalization)
  Sender: FDA-Public Use
  Company Number: IT-BRACCO-002833

PATIENT
  Age: 51 Year
  Sex: Female

DRUGS (6)
  1. IOPAMIRO [Suspect]
     Indication: ANGIOGRAM CEREBRAL
     Route: 013
     Dates: start: 20130829, end: 20130829
  2. PLAVIX [Concomitant]
  3. EUTIROX [Concomitant]
  4. ASCRIPTIN [Concomitant]
  5. PERFALGAN [Concomitant]
     Route: 042
  6. ZANTAC [Concomitant]

REACTIONS (3)
  - Hallucination, auditory [Recovered/Resolved]
  - Hallucination, visual [Recovered/Resolved]
  - Visual impairment [Recovered/Resolved]
